FAERS Safety Report 7118488-4 (Version None)
Quarter: 2010Q4

REPORT INFORMATION
  Report Type: 
  Country: None (occurrence: None)
  Receive Date: 20101123
  Receipt Date: 20101112
  Transmission Date: 20110411
  Serious: Yes (Hospitalization)
  Sender: FDA-Public Use
  Company Number: US-CELGENEUS-163-21880-10111704

PATIENT
  Age: 77 Year
  Sex: Female
  Weight: 75.7 kg

DRUGS (7)
  1. REVLIMID [Suspect]
     Route: 048
     Dates: start: 20100707
  2. REVLIMID [Suspect]
     Route: 048
     Dates: start: 20101029, end: 20101108
  3. MELPHALAN HYDROCHLORIDE [Suspect]
     Route: 048
     Dates: start: 20100707
  4. MELPHALAN HYDROCHLORIDE [Suspect]
     Route: 048
     Dates: start: 20101029, end: 20101101
  5. PREDNISONE [Suspect]
     Route: 048
     Dates: start: 20100707
  6. PREDNISONE [Suspect]
     Route: 048
     Dates: start: 20101029, end: 20101101
  7. ASPIRIN [Concomitant]
     Route: 048

REACTIONS (3)
  - ANGINA UNSTABLE [None]
  - MYOCARDIAL INFARCTION [None]
  - PLATELET COUNT DECREASED [None]
